FAERS Safety Report 16582569 (Version 3)
Quarter: 2019Q3

REPORT INFORMATION
  Report Type: Spontaneous
  Country: DE (occurrence: DE)
  Receive Date: 20190717
  Receipt Date: 20190807
  Transmission Date: 20191004
  Serious: Yes (Hospitalization, Other)
  Sender: FDA-Public Use
  Company Number: DE-SUN PHARMACEUTICAL INDUSTRIES LTD-2019RR-213745

PATIENT
  Age: 41 Year
  Sex: Female
  Weight: 58 kg

DRUGS (4)
  1. IBUPROFEN. [Concomitant]
     Active Substance: IBUPROFEN
     Indication: PRODUCT USED FOR UNKNOWN INDICATION
     Dosage: ()
     Route: 065
     Dates: start: 201508
  2. CIPROFLOXACIN. [Suspect]
     Active Substance: CIPROFLOXACIN
     Indication: URINARY TRACT INFECTION
     Dosage: 250 MILLIGRAM, DAILY
     Route: 048
     Dates: start: 20120308, end: 20120308
  3. CIPROFLOXACIN. [Suspect]
     Active Substance: CIPROFLOXACIN
     Dosage: 250 UNK
     Route: 048
     Dates: start: 20150610, end: 20160620
  4. PREDNISOLON [Concomitant]
     Active Substance: PREDNISOLONE
     Indication: PRODUCT USED FOR UNKNOWN INDICATION
     Dosage: 10 MILLIGRAM, DAILY
     Dates: start: 20150321

REACTIONS (50)
  - Enteritis [Unknown]
  - Nausea [Unknown]
  - Disturbance in attention [Unknown]
  - Tremor [Unknown]
  - Myalgia [Not Recovered/Not Resolved]
  - Migraine [Unknown]
  - Visual impairment [Unknown]
  - Walking disability [Not Recovered/Not Resolved]
  - Tendon rupture [Unknown]
  - Rash [Unknown]
  - Dizziness [Recovering/Resolving]
  - Cardiovascular disorder [Not Recovered/Not Resolved]
  - Food intolerance [Unknown]
  - Oropharyngeal pain [Unknown]
  - Dysphagia [Unknown]
  - Herpes virus infection [Unknown]
  - Vomiting [Unknown]
  - Back pain [Unknown]
  - Dyspnoea [Not Recovered/Not Resolved]
  - Parosmia [Unknown]
  - Hypoaesthesia [Unknown]
  - Stress [Unknown]
  - Palpitations [Not Recovered/Not Resolved]
  - Tendon pain [Not Recovered/Not Resolved]
  - Epistaxis [Unknown]
  - Panic reaction [Unknown]
  - Musculoskeletal stiffness [Not Recovered/Not Resolved]
  - Tinnitus [Unknown]
  - Nasal inflammation [Unknown]
  - Fatigue [Unknown]
  - Sleep disorder [Recovering/Resolving]
  - Sensory disturbance [Not Recovered/Not Resolved]
  - Muscle twitching [Not Recovered/Not Resolved]
  - Speech disorder [Unknown]
  - Chronic sinusitis [Unknown]
  - Vulvovaginal mycotic infection [Unknown]
  - Myalgia [Unknown]
  - Arrhythmia [Not Recovered/Not Resolved]
  - Spinal osteoarthritis [Unknown]
  - Chest discomfort [Unknown]
  - Immune system disorder [Unknown]
  - Headache [Not Recovered/Not Resolved]
  - Muscular weakness [Not Recovered/Not Resolved]
  - Apnoea [Not Recovered/Not Resolved]
  - Paraesthesia [Unknown]
  - Neck pain [Not Recovered/Not Resolved]
  - Vaginal infection [Unknown]
  - Blood pressure decreased [Not Recovered/Not Resolved]
  - Memory impairment [Unknown]
  - Asthenia [Not Recovered/Not Resolved]

NARRATIVE: CASE EVENT DATE: 2012
